FAERS Safety Report 8314274-8 (Version None)
Quarter: 2012Q1

REPORT INFORMATION
  Report Type: 
  Country: None (occurrence: None)
  Receive Date: 20120315
  Receipt Date: 20110525
  Transmission Date: 20120608
  Serious: No
  Sender: FDA-Public Use
  Company Number: PHHY2011US47446

PATIENT
  Age: 49 Year
  Sex: Female

DRUGS (10)
  1. NIFEDIAC (NIFEDIPINE) [Concomitant]
  2. VITAMIN D [Concomitant]
  3. CELEBREX [Concomitant]
  4. LEXAPRO [Concomitant]
  5. GILENYA [Suspect]
     Indication: MULTIPLE SCLEROSIS
     Dosage: 0.5 MG, DAILY, ORAL
     Route: 048
     Dates: start: 20110306
  6. LYRICA [Concomitant]
  7. COREG [Concomitant]
  8. LIPITOR [Concomitant]
  9. ULTRAM [Concomitant]
  10. LISINOPRIL [Concomitant]

REACTIONS (2)
  - VISUAL IMPAIRMENT [None]
  - COUGH [None]
